FAERS Safety Report 7785087-0 (Version None)
Quarter: 2011Q3

REPORT INFORMATION
  Report Type: 
  Country: None (occurrence: None)
  Receive Date: 20110929
  Receipt Date: 20110919
  Transmission Date: 20111222
  Serious: No
  Sender: FDA-Public Use
  Company Number: US-BIOGENIDEC-2010BI018648

PATIENT
  Sex: Female

DRUGS (6)
  1. EAR DROPS (NOS) [Concomitant]
     Indication: TRIGEMINAL NEURALGIA
  2. TYSABRI [Suspect]
     Indication: MULTIPLE SCLEROSIS
     Route: 042
     Dates: start: 20080122
  3. CIPRO EAR DROPS [Concomitant]
     Indication: TRIGEMINAL NEURALGIA
  4. ENABLEX [Concomitant]
     Indication: PRODUCT USED FOR UNKNOWN INDICATION
  5. TEGRETOL [Concomitant]
     Indication: CONVULSION
     Dates: start: 20070101
  6. TEGRETOL [Concomitant]
     Indication: TRIGEMINAL NEURALGIA
     Dates: start: 20070101

REACTIONS (8)
  - VULVOVAGINAL PRURITUS [None]
  - TRIGEMINAL NEURALGIA [None]
  - VULVOVAGINAL PAIN [None]
  - PAIN IN EXTREMITY [None]
  - SENSORY DISTURBANCE [None]
  - URINARY TRACT INFECTION [None]
  - VULVOVAGINAL BURNING SENSATION [None]
  - POLLAKIURIA [None]
